FAERS Safety Report 7153296-X (Version None)
Quarter: 2010Q4

REPORT INFORMATION
  Report Type: 
  Country: None (occurrence: None)
  Receive Date: 20101209
  Receipt Date: 20101209
  Transmission Date: 20110411
  Serious: Yes (Hospitalization)
  Sender: FDA-Public Use
  Company Number: None

PATIENT
  Sex: Female

DRUGS (14)
  1. NEPAFANAC (NOT RELATED PER INVESTIGATOR) [Suspect]
     Indication: DIABETIC RETINAL OEDEMA
     Dosage: 1 GTT TID OPH
     Route: 047
     Dates: start: 20100119, end: 20100420
  2. NEPAFANAC (NOT RELATED PER INVESTIGATOR) [Suspect]
     Indication: DIABETIC RETINAL OEDEMA
     Dosage: 1 GTT TID OPH
     Route: 047
     Dates: start: 20100519, end: 20100819
  3. LANTUS [Concomitant]
  4. HUMALOG [Concomitant]
  5. WARFARIN [Concomitant]
  6. DARVOCET [Concomitant]
  7. INSULIN [Concomitant]
  8. SIMVASTATIN [Concomitant]
  9. LISINOPRIL [Concomitant]
  10. ALENDRONATE [Concomitant]
  11. URSODIOL [Concomitant]
  12. CENTRUM SILVER [Concomitant]
  13. PRED FORTE [Concomitant]
  14. VIGAMOX [Concomitant]

REACTIONS (1)
  - PULMONARY EMBOLISM [None]
